FAERS Safety Report 6171533-5 (Version None)
Quarter: 2009Q2

REPORT INFORMATION
  Report Type: 
  Country: None (occurrence: None)
  Receive Date: 20090429
  Receipt Date: 20090422
  Transmission Date: 20091009
  Serious: Yes (Death, Hospitalization)
  Sender: FDA-Public Use
  Company Number: NL-PFIZER INC-2009186367

PATIENT

DRUGS (7)
  1. HYDROXYZINE HCL [Suspect]
     Dosage: 25 MG, 4X/DAY
  2. TEMAZEPAM [Concomitant]
     Dosage: 10 MG, 4X/DAY
  3. ENALAPRIL [Concomitant]
  4. SEVELAMER [Concomitant]
     Dosage: 800 MG, 3X/DAY
  5. EPOETIN BETA [Concomitant]
     Dosage: 2000 IU, WEEKLY
  6. NADROPARIN [Concomitant]
     Dosage: 2850 IU, UNK
  7. IRON SUCROSE [Concomitant]

REACTIONS (1)
  - PORPHYRIA ACUTE [None]
